FAERS Safety Report 15984800 (Version 1)
Quarter: 2019Q1

REPORT INFORMATION
  Report Type: Report from Study
  Country: US (occurrence: US)
  Receive Date: 20190220
  Receipt Date: 20190220
  Transmission Date: 20190418
  Serious: Yes (Hospitalization, Other)
  Sender: FDA-Public Use
  Company Number: US-ASPEN-GLO2019US001512

PATIENT
  Age: 13 Year
  Sex: Female
  Weight: 41.9 kg

DRUGS (11)
  1. TIOGUANINE [Suspect]
     Active Substance: THIOGUANINE ANHYDROUS
     Indication: ACUTE LYMPHOCYTIC LEUKAEMIA
     Dosage: 80 MG, MON-SAT
     Route: 048
  2. TIOGUANINE [Suspect]
     Active Substance: THIOGUANINE ANHYDROUS
     Dosage: 100 MG ON SUNDAY
  3. METHOTREXATE. [Suspect]
     Active Substance: METHOTREXATE
     Indication: ACUTE LYMPHOCYTIC LEUKAEMIA
     Dosage: 15 MG, 1 DOSAGE TOTAL
     Route: 037
     Dates: start: 20160930
  4. RUXOLITINIB [Suspect]
     Active Substance: RUXOLITINIB
     Dosage: 55 MG BID
     Route: 048
     Dates: start: 20170428
  5. PEGASPARGASE [Suspect]
     Active Substance: PEGASPARGASE
     Indication: ACUTE LYMPHOCYTIC LEUKAEMIA
     Dosage: 3450 IU, UNK
     Route: 042
     Dates: start: 20171014
  6. VINCRISTINE [Suspect]
     Active Substance: VINCRISTINE
     Indication: ACUTE LYMPHOCYTIC LEUKAEMIA
     Dosage: 2 MG, DAYS 1,8 AND 15
     Route: 042
     Dates: start: 20161014
  7. DEXAMETHASONE. [Suspect]
     Active Substance: DEXAMETHASONE
     Dosage: 7 MG, BID
     Dates: start: 20170411, end: 20170417
  8. CYTARABINE. [Suspect]
     Active Substance: CYTARABINE
     Indication: ACUTE LYMPHOCYTIC LEUKAEMIA
     Dosage: 104 MG, 1 DOSAGE TOTAL
     Route: 042
     Dates: start: 20160930
  9. RUXOLITINIB [Suspect]
     Active Substance: RUXOLITINIB
     Indication: ACUTE LYMPHOCYTIC LEUKAEMIA
     Dosage: 55 MG, BID
     Route: 048
     Dates: start: 20160930, end: 20170425
  10. DEXAMETHASONE. [Suspect]
     Active Substance: DEXAMETHASONE
     Indication: ACUTE LYMPHOCYTIC LEUKAEMIA
     Dosage: 7 MG, BID
     Route: 048
     Dates: start: 20170328, end: 20170413
  11. DOXORUBICIN [Suspect]
     Active Substance: DOXORUBICIN
     Indication: ACUTE LYMPHOCYTIC LEUKAEMIA
     Dosage: 34.76 MG, DAYS 1, 8, 15
     Route: 042
     Dates: start: 20170328

REACTIONS (1)
  - Febrile neutropenia [Recovered/Resolved with Sequelae]

NARRATIVE: CASE EVENT DATE: 20170414
